FAERS Safety Report 7916479-4 (Version None)
Quarter: 2011Q4

REPORT INFORMATION
  Report Type: 
  Country: None (occurrence: None)
  Receive Date: 20111114
  Receipt Date: 20111107
  Transmission Date: 20120403
  Serious: Yes (Hospitalization, Disabling, Other)
  Sender: FDA-Public Use
  Company Number: AUR-APL-2011-05161

PATIENT
  Sex: Female

DRUGS (12)
  1. ALUDROX SA TAB [Suspect]
     Indication: ANTACID THERAPY
  2. PLAVIX [Concomitant]
  3. AMOXICILLIN [Suspect]
     Indication: ANTIBIOTIC PROPHYLAXIS
     Dosage: (1000 MG)
  4. PEPCID [Suspect]
     Indication: PRODUCT USED FOR UNKNOWN INDICATION
     Dates: start: 20090701
  5. DOCUSATE (DOCUSATE) [Concomitant]
  6. ASPIRIN [Concomitant]
  7. PRILOSEC [Suspect]
     Indication: PRODUCT USED FOR UNKNOWN INDICATION
     Dates: start: 20090901
  8. FUROSEMIDE [Concomitant]
  9. LOVASTATIN [Concomitant]
  10. OMEPRAZOLE [Suspect]
     Indication: PRODUCT USED FOR UNKNOWN INDICATION
     Dates: start: 20090101
  11. SPIRONOLACTONE [Concomitant]
  12. LISINOPRIL [Concomitant]

REACTIONS (9)
  - ELECTROLYTE IMBALANCE [None]
  - MALAISE [None]
  - ABDOMINAL PAIN UPPER [None]
  - DRUG HYPERSENSITIVITY [None]
  - GASTRIC DISORDER [None]
  - DECREASED APPETITE [None]
  - DYSPEPSIA [None]
  - DEHYDRATION [None]
  - DRUG INTOLERANCE [None]
